FAERS Safety Report 4846128-3 (Version None)
Quarter: 2005Q4

REPORT INFORMATION
  Report Type: 
  Country: None (occurrence: None)
  Receive Date: 20051130
  Receipt Date: 20051018
  Transmission Date: 20060501
  Serious: Yes (Other)
  Sender: FDA-Public Use
  Company Number: 2005S1000310

PATIENT
  Age: 68 Year
  Sex: Male

DRUGS (16)
  1. SORIATANE [Suspect]
     Indication: SKIN CANCER
     Dosage: 24 MG; QD; PO
     Route: 048
     Dates: start: 20050501, end: 20050801
  2. PREDNISONE [Concomitant]
  3. PROGRAF [Concomitant]
  4. ACIPHEX [Concomitant]
  5. AZATHIOPRINE [Concomitant]
  6. CLINDAMYCIN [Concomitant]
  7. CIPROFLOXACIN [Concomitant]
  8. CLONIDINE HCL [Concomitant]
  9. PENTAMIDINE [Concomitant]
  10. AMBIEN [Concomitant]
  11. COUMADIN [Concomitant]
  12. AMLODIPINE [Concomitant]
  13. BICITRA [Concomitant]
  14. TAMSULOSIN [Concomitant]
  15. TOLERODINE [Concomitant]
  16. LISINOPRIL [Concomitant]

REACTIONS (5)
  - ALOPECIA [None]
  - MALIGNANT NEOPLASM PROGRESSION [None]
  - NAIL DISORDER [None]
  - SKIN CANCER [None]
  - SQUAMOUS CELL CARCINOMA [None]
